FAERS Safety Report 8041186-X (Version None)
Quarter: 2012Q1

REPORT INFORMATION
  Report Type: 
  Country: None (occurrence: None)
  Receive Date: 20120112
  Receipt Date: 20120104
  Transmission Date: 20120608
  Serious: Yes (Hospitalization)
  Sender: FDA-Public Use
  Company Number: US-BAYER-2011-078677

PATIENT
  Age: 35 Year
  Sex: Female

DRUGS (6)
  1. WELLBUTRIN SR [Concomitant]
     Dosage: 150 MG, DAILY
     Route: 048
  2. YASMIN [Suspect]
     Dosage: UNK
     Dates: start: 20040401, end: 20060817
  3. ALDACTONE [Concomitant]
  4. MOTRIN [Concomitant]
     Indication: PAIN IN EXTREMITY
  5. LAMICTAL [Concomitant]
     Dosage: 100 MG, AT BEDTIME
     Route: 048
  6. GEODON [Concomitant]
     Dosage: 40 MG, AT BEDTIME

REACTIONS (6)
  - DEEP VEIN THROMBOSIS [None]
  - PAIN [None]
  - EMOTIONAL DISTRESS [None]
  - GENERAL PHYSICAL HEALTH DETERIORATION [None]
  - INJURY [None]
  - ANXIETY [None]
